FAERS Safety Report 21099095 (Version 1)
Quarter: 2022Q3

REPORT INFORMATION
  Report Type: Spontaneous
  Country: US (occurrence: None)
  Receive Date: 20220719
  Receipt Date: 20220719
  Transmission Date: 20221027
  Serious: Yes (unspecified)
  Sender: FDA-Public Use
  Company Number: None

PATIENT
  Age: 68 Year
  Sex: Female
  Weight: 45.8 kg

DRUGS (5)
  1. PACLITAXEL [Suspect]
     Active Substance: PACLITAXEL
     Indication: Cervix cancer metastatic
     Dosage: 235 MG ONE TIME INFUSION ITRAVENOUS DRIP?
     Route: 041
     Dates: start: 20220718, end: 20220718
  2. EpiPen Adult [Concomitant]
     Dates: start: 20220718, end: 20220718
  3. Hydrocortisone 100 mg IVP [Concomitant]
     Dates: start: 20220718, end: 20220718
  4. EPIPEN [Concomitant]
     Active Substance: EPINEPHRINE
     Dates: start: 20220718, end: 20220718
  5. MIDAZOLAM [Concomitant]
     Active Substance: MIDAZOLAM
     Dates: start: 20220718, end: 20220718

REACTIONS (6)
  - Chest pain [None]
  - Infusion related reaction [None]
  - Loss of consciousness [None]
  - Blood pressure decreased [None]
  - Unresponsive to stimuli [None]
  - Heart rate increased [None]

NARRATIVE: CASE EVENT DATE: 20220718
